FAERS Safety Report 10220327 (Version 2)
Quarter: 2014Q3

REPORT INFORMATION
  Report Type: Spontaneous
  Country: FR (occurrence: FR)
  Receive Date: 20140606
  Receipt Date: 20140807
  Transmission Date: 20150326
  Serious: Yes (Hospitalization)
  Sender: FDA-Public Use
  Company Number: FR-ROCHE-1414188

PATIENT
  Sex: Male
  Weight: 82 kg

DRUGS (3)
  1. GANFORT [Concomitant]
     Active Substance: BIMATOPROST\TIMOLOL
     Indication: GLAUCOMA
     Route: 065
  2. ZELBORAF [Suspect]
     Active Substance: VEMURAFENIB
     Route: 065
  3. ZELBORAF [Suspect]
     Active Substance: VEMURAFENIB
     Indication: MALIGNANT MELANOMA
     Route: 048
     Dates: start: 20140516

REACTIONS (6)
  - Rash generalised [Recovered/Resolved]
  - Arthralgia [Recovered/Resolved]
  - Eosinophil count increased [Unknown]
  - Blood creatinine increased [Recovering/Resolving]
  - Pyrexia [Recovered/Resolved]
  - Decreased appetite [Recovered/Resolved]

NARRATIVE: CASE EVENT DATE: 20140602
